FAERS Safety Report 5917968-4 (Version None)
Quarter: 2008Q4

REPORT INFORMATION
  Report Type: 
  Country: None (occurrence: None)
  Receive Date: 20081014
  Receipt Date: 20081002
  Transmission Date: 20090506
  Serious: Yes (Other)
  Sender: FDA-Public Use
  Company Number: JP-PFIZER INC-2008067072

PATIENT
  Sex: Male
  Weight: 55 kg

DRUGS (5)
  1. ZYVOX [Suspect]
     Indication: STAPHYLOCOCCAL SEPSIS
     Route: 042
     Dates: start: 20080806, end: 20080806
  2. VANCOMYCIN HYDROCHLORIDE [Concomitant]
     Dates: start: 20080724, end: 20080805
  3. TAKEPRON [Concomitant]
     Route: 048
     Dates: start: 20080806
  4. WARFARIN SODIUM [Concomitant]
     Route: 048
     Dates: start: 20080807
  5. HEPARIN SODIUM [Concomitant]
     Route: 042
     Dates: start: 20080807, end: 20080809

REACTIONS (2)
  - LIVER DISORDER [None]
  - NEUTROPHIL COUNT DECREASED [None]
